FAERS Safety Report 7509915-9 (Version None)
Quarter: 2011Q2

REPORT INFORMATION
  Report Type: 
  Country: None (occurrence: None)
  Receive Date: 20110527
  Receipt Date: 20110516
  Transmission Date: 20111010
  Serious: Yes (Other)
  Sender: FDA-Public Use
  Company Number: GB-JNJFOC-20100907981

PATIENT
  Age: 26 Year
  Sex: Female

DRUGS (2)
  1. HYDROCORTISONE [Concomitant]
  2. REMICADE [Suspect]
     Indication: CROHN'S DISEASE
     Dosage: ONE INFUSION
     Route: 042
     Dates: start: 20100909

REACTIONS (7)
  - DRUG EXPOSURE DURING PREGNANCY [None]
  - ABDOMINAL SEPSIS [None]
  - ABDOMINAL ABSCESS [None]
  - DRUG INEFFECTIVE [None]
  - INTESTINAL PERFORATION [None]
  - ABORTION SPONTANEOUS [None]
  - FISTULA [None]
